FAERS Safety Report 16089940 (Version 1)
Quarter: 2019Q1

REPORT INFORMATION
  Report Type: Spontaneous
  Country: US (occurrence: US)
  Receive Date: 20190319
  Receipt Date: 20190319
  Transmission Date: 20190418
  Serious: No
  Sender: FDA-Public Use
  Company Number: US-TEVA-2019-US-1016855

PATIENT
  Sex: Male

DRUGS (1)
  1. MUPIROCIN OINTMENT [Suspect]
     Active Substance: MUPIROCIN
     Route: 045

REACTIONS (2)
  - Product administered at inappropriate site [Unknown]
  - Product dispensing error [Unknown]
